FAERS Safety Report 5269596-4 (Version None)
Quarter: 2007Q1

REPORT INFORMATION
  Report Type: 
  Country: None (occurrence: None)
  Receive Date: 20061213
  Receipt Date: 20010126
  Transmission Date: 20070707
  Serious: No
  Sender: FDA-Public Use
  Company Number: 2001UW00989

PATIENT
  Age: 59 Year
  Sex: Female
  Weight: 51.2565 kg

DRUGS (4)
  1. TAMOXIFEN CITRATE [Suspect]
     Indication: BREAST CANCER
     Dosage: 20 MG; PO
     Route: 048
     Dates: start: 19960901
  2. FOSAMAX [Concomitant]
  3. SYNTHROID [Concomitant]
  4. VITAMINS [Concomitant]

REACTIONS (1)
  - ENDOMETRIAL CANCER [None]
